FAERS Safety Report 9547195 (Version 1)
Quarter: 2013Q3

REPORT INFORMATION
  Report Type: Spontaneous
  Country: GB (occurrence: GB)
  Receive Date: 20130924
  Receipt Date: 20130924
  Transmission Date: 20140515
  Serious: Yes (Hospitalization)
  Sender: FDA-Public Use
  Company Number: GB-JNJFOC-20130912877

PATIENT
  Age: 77 Year
  Sex: Male

DRUGS (8)
  1. XARELTO [Suspect]
     Indication: CEREBROVASCULAR ACCIDENT PROPHYLAXIS
     Route: 048
     Dates: start: 201302, end: 201308
  2. XARELTO [Suspect]
     Indication: ATRIAL FIBRILLATION
     Route: 048
     Dates: start: 201302, end: 201308
  3. ALLOPURINOL [Suspect]
     Indication: GOUTY ARTHRITIS
     Route: 048
     Dates: start: 201308, end: 20130812
  4. ALLOPURINOL [Suspect]
     Indication: GOUTY ARTHRITIS
     Route: 048
     Dates: start: 201304, end: 201308
  5. LANSOPRAZOLE [Concomitant]
     Route: 048
  6. FUROSEMIDE [Concomitant]
     Route: 048
     Dates: end: 20130809
  7. LISINOPRIL [Concomitant]
     Route: 048
  8. BISOPROLOL [Concomitant]
     Route: 048

REACTIONS (2)
  - Rash generalised [Not Recovered/Not Resolved]
  - Pancytopenia [Not Recovered/Not Resolved]
